FAERS Safety Report 8804609 (Version 1)
Quarter: 2012Q4

REPORT INFORMATION
  Report Type: 
  Country: AU (occurrence: AU)
  Receive Date: 20120924
  Receipt Date: 20120924
  Transmission Date: 20130627
  Serious: Yes (Death, Other)
  Sender: FDA-Public Use
  Company Number: AU-PURDUE-USA-2012-0093161

PATIENT
  Age: 37 Year
  Sex: Male

DRUGS (2)
  1. OXYCONTIN TABLETS [Suspect]
     Indication: DRUG ABUSE
     Route: 051
  2. VALIUM                             /00017001/ [Suspect]
     Indication: DRUG ABUSE
     Route: 051

REACTIONS (2)
  - Drug abuse [Unknown]
  - Victim of homicide [Fatal]
